FAERS Safety Report 13362349 (Version 1)
Quarter: 2017Q1

REPORT INFORMATION
  Report Type: Spontaneous
  Country: US (occurrence: US)
  Receive Date: 20170322
  Receipt Date: 20170322
  Transmission Date: 20170429
  Serious: No
  Sender: FDA-Public Use
  Company Number: None

PATIENT
  Age: 79 Year
  Sex: Female

DRUGS (1)
  1. FORTEO [Suspect]
     Active Substance: TERIPARATIDE
     Indication: OSTEOPOROSIS
     Route: 058

REACTIONS (6)
  - Hyperventilation [None]
  - Dizziness [None]
  - Incontinence [None]
  - Arthralgia [None]
  - Pain in extremity [None]
  - Disturbance in attention [None]

NARRATIVE: CASE EVENT DATE: 20170308
